FAERS Safety Report 6346243-1 (Version None)
Quarter: 2009Q3

REPORT INFORMATION
  Report Type: 
  Country: None (occurrence: None)
  Receive Date: 20090909
  Receipt Date: 20090901
  Transmission Date: 20100115
  Serious: Yes (Other)
  Sender: FDA-Public Use
  Company Number: PHHY2009AR37228

PATIENT
  Sex: Female

DRUGS (5)
  1. ACLASTA [Suspect]
     Indication: OSTEOPOROSIS
     Dosage: UNK
     Route: 042
     Dates: start: 20090831
  2. INSULIN [Concomitant]
  3. ENALAPRIL MALEATE [Concomitant]
     Dosage: 5 MG 1TABLET DAILY
  4. LEVOTHYROXINE [Concomitant]
  5. ATORVASTATIN [Concomitant]

REACTIONS (4)
  - BLOOD GLUCOSE INCREASED [None]
  - FEELING COLD [None]
  - HEADACHE [None]
  - SENSATION OF HEAVINESS [None]
